FAERS Safety Report 13424448 (Version 2)
Quarter: 2017Q2

REPORT INFORMATION
  Report Type: Spontaneous
  Country: US (occurrence: US)
  Receive Date: 20170410
  Receipt Date: 20170418
  Transmission Date: 20170830
  Serious: No
  Sender: FDA-Public Use
  Company Number: US-SHIRE-US201707926

PATIENT
  Age: 4 Decade
  Sex: Male

DRUGS (1)
  1. VYVANSE [Suspect]
     Active Substance: LISDEXAMFETAMINE DIMESYLATE
     Indication: PRODUCT USED FOR UNKNOWN INDICATION
     Dosage: 30 MG, 1X/DAY:QD
     Route: 048

REACTIONS (4)
  - Feeling jittery [Not Recovered/Not Resolved]
  - Energy increased [Not Recovered/Not Resolved]
  - Drug effect increased [Not Recovered/Not Resolved]
  - Anxiety [Not Recovered/Not Resolved]
